FAERS Safety Report 10064821 (Version 1)
Quarter: 2014Q2

REPORT INFORMATION
  Report Type: Spontaneous
  Country: US (occurrence: None)
  Receive Date: 20140407
  Receipt Date: 20140407
  Transmission Date: 20141212
  Serious: Yes (Hospitalization)
  Sender: FDA-Public Use
  Company Number: None

PATIENT
  Age: 43 Year
  Sex: Female
  Weight: 118.2 kg

DRUGS (2)
  1. EMTRICITABINE/TENOFOVIR [Suspect]
     Indication: INFECTION
     Dosage: 1 TAB
     Route: 048
     Dates: start: 20050322
  2. RALTEGRAVIR [Suspect]
     Indication: INFECTION
     Route: 048
     Dates: start: 20080422

REACTIONS (6)
  - Nausea [None]
  - Food intolerance [None]
  - Retching [None]
  - Diarrhoea [None]
  - Vomiting [None]
  - Anastomotic complication [None]
